FAERS Safety Report 14968640 (Version 3)
Quarter: 2018Q3

REPORT INFORMATION
  Report Type: Report from Study
  Country: CO (occurrence: CO)
  Receive Date: 20180604
  Receipt Date: 20180813
  Transmission Date: 20181010
  Serious: Yes (Hospitalization, Other)
  Sender: FDA-Public Use
  Company Number: CO-ASTELLAS-2018US025070

PATIENT
  Age: 77 Year
  Sex: Male

DRUGS (1)
  1. ENZALUTAMIDE [Suspect]
     Active Substance: ENZALUTAMIDE
     Indication: HORMONE-REFRACTORY PROSTATE CANCER
     Route: 048
     Dates: start: 20180505

REACTIONS (7)
  - General physical health deterioration [Not Recovered/Not Resolved]
  - Muscle strain [Not Recovered/Not Resolved]
  - Eschar [Recovering/Resolving]
  - Dyskinesia [Not Recovered/Not Resolved]
  - Hypoaesthesia [Unknown]
  - Pneumonia [Recovering/Resolving]
  - Dry skin [Not Recovered/Not Resolved]

NARRATIVE: CASE EVENT DATE: 20180508
